FAERS Safety Report 6823878-0 (Version None)
Quarter: 2010Q3

REPORT INFORMATION
  Report Type: 
  Country: None (occurrence: None)
  Receive Date: 20100708
  Receipt Date: 20060916
  Transmission Date: 20110219
  Serious: No
  Sender: FDA-Public Use
  Company Number: US-PFIZER INC-2006114035

PATIENT
  Weight: 140.61 kg

DRUGS (3)
  1. CHANTIX [Suspect]
     Indication: SMOKING CESSATION THERAPY
     Dates: start: 20060916
  2. ADVAIR DISKUS 100/50 [Concomitant]
     Route: 055
  3. LISINOPRIL [Concomitant]

REACTIONS (1)
  - DYSPNOEA [None]
